FAERS Safety Report 14950974 (Version 2)
Quarter: 2018Q2

REPORT INFORMATION
  Report Type: Spontaneous
  Country: IL (occurrence: IL)
  Receive Date: 20180530
  Receipt Date: 20180613
  Transmission Date: 20180711
  Serious: Yes (Hospitalization, Other)
  Sender: FDA-Public Use
  Company Number: IL-009507513-1805ISR012329

PATIENT
  Sex: Female

DRUGS (2)
  1. CELESTONE CHRONODOSE [Suspect]
     Active Substance: BETAMETHASONE ACETATE\BETAMETHASONE SODIUM PHOSPHATE
     Dosage: UNK
     Route: 064
  2. CELESTONE CHRONODOSE [Suspect]
     Active Substance: BETAMETHASONE ACETATE\BETAMETHASONE SODIUM PHOSPHATE
     Dosage: UNK
     Route: 064

REACTIONS (3)
  - Low birth weight baby [Unknown]
  - Foetal exposure during delivery [Recovered/Resolved]
  - Premature baby [Unknown]

NARRATIVE: CASE EVENT DATE: 20180519
